FAERS Safety Report 7809458-9 (Version None)
Quarter: 2011Q4

REPORT INFORMATION
  Report Type: 
  Country: None (occurrence: None)
  Receive Date: 20111012
  Receipt Date: 20110929
  Transmission Date: 20120403
  Serious: Yes (Other)
  Sender: FDA-Public Use
  Company Number: PHHY2011JP81382

PATIENT
  Sex: Female

DRUGS (5)
  1. LASIX [Suspect]
     Dosage: 40 MG/H, DAILY
     Route: 048
     Dates: start: 20100709
  2. POTASSIUM [Concomitant]
     Dosage: 1800 MG, UNK
     Dates: start: 20100709
  3. MUCOSTA [Concomitant]
     Dosage: 300 MG, UNK
     Route: 048
     Dates: start: 20110715
  4. LANSOPRAZOLE [Concomitant]
     Dosage: 15 MG, UNK
     Dates: start: 20100916
  5. TASIGNA [Suspect]
     Indication: CHRONIC MYELOID LEUKAEMIA
     Dosage: 800 MG, DAILY
     Route: 048
     Dates: start: 20100709

REACTIONS (2)
  - ANAEMIA [None]
  - CONCOMITANT DISEASE AGGRAVATED [None]
